FAERS Safety Report 8491074 (Version 2)
Quarter: 2012Q4

REPORT INFORMATION
  Report Type: 
  Country: US (occurrence: US)
  Receive Date: 20120403
  Receipt Date: 20120910
  Transmission Date: 20130627
  Serious: Yes (Hospitalization, Other)
  Sender: FDA-Public Use
  Company Number: US-BAYER-2012-029594

PATIENT
  Age: 20 Year
  Sex: Female
  Weight: 73 kg

DRUGS (13)
  1. YASMIN [Suspect]
     Indication: CONTRACEPTION
     Dosage: UNK
     Dates: start: 20080102, end: 20080628
  2. YASMIN [Suspect]
     Indication: ACNE
  3. YASMIN [Suspect]
     Indication: MENSTRUAL CYCLE MANAGEMENT
  4. OCELLA [Suspect]
     Indication: CONTRACEPTION
     Dosage: UNK
     Dates: start: 20080726, end: 20090818
  5. OCELLA [Suspect]
     Indication: ACNE
  6. BENADRYL [Concomitant]
     Dosage: 25 mg,slow IVPUSH over 10 minutes
  7. REGLAN [Concomitant]
     Dosage: 10 mg,IVPUSH over 1 minute
  8. TYLENOL # 3 [Concomitant]
     Indication: PAIN
  9. ZOFRAN [Concomitant]
  10. IBUPROFEN [Concomitant]
  11. DIFFERINE [Concomitant]
  12. HEPARIN [Concomitant]
  13. KEFZOL [Concomitant]

REACTIONS (3)
  - Cholecystitis chronic [None]
  - Cholelithiasis [None]
  - Pain [None]
